FAERS Safety Report 7776788-9 (Version None)
Quarter: 2011Q3

REPORT INFORMATION
  Report Type: 
  Country: None (occurrence: None)
  Receive Date: 20110926
  Receipt Date: 20110914
  Transmission Date: 20111222
  Serious: Yes (Hospitalization)
  Sender: FDA-Public Use
  Company Number: FR-JNJFOC-20100704556

PATIENT
  Sex: Female
  Weight: 46.5 kg

DRUGS (6)
  1. HUMIRA [Concomitant]
     Dates: start: 20100217
  2. INFLIXIMAB [Suspect]
     Indication: CROHN'S DISEASE
     Route: 042
     Dates: start: 20080314, end: 20091027
  3. OMEPRAZOLE [Concomitant]
  4. HUMIRA [Concomitant]
     Indication: CROHN'S DISEASE
     Dates: start: 20091211
  5. HUMIRA [Concomitant]
     Dates: start: 20100818
  6. BUDESONIDE [Concomitant]

REACTIONS (1)
  - CROHN'S DISEASE [None]
